FAERS Safety Report 6277746-6 (Version None)
Quarter: 2009Q3

REPORT INFORMATION
  Report Type: 
  Country: None (occurrence: None)
  Receive Date: 20090722
  Receipt Date: 20090713
  Transmission Date: 20100115
  Serious: Yes (Hospitalization)
  Sender: FDA-Public Use
  Company Number: B0582200A

PATIENT
  Age: 82 Year
  Sex: Female

DRUGS (4)
  1. VALTREX [Suspect]
     Indication: HERPES SIMPLEX
     Dosage: 1000MG TWICE PER DAY
     Route: 048
     Dates: start: 20090630, end: 20090704
  2. NIZORAL [Concomitant]
     Route: 061
  3. ARASENA-A [Concomitant]
     Route: 061
  4. ALLEGRA [Concomitant]
     Dosage: 240MG PER DAY
     Route: 048

REACTIONS (3)
  - DIZZINESS [None]
  - NERVOUS SYSTEM DISORDER [None]
  - OVERDOSE [None]
